FAERS Safety Report 7291789-5 (Version None)
Quarter: 2011Q1

REPORT INFORMATION
  Report Type: 
  Country: None (occurrence: None)
  Receive Date: 20110214
  Receipt Date: 20110209
  Transmission Date: 20110831
  Serious: Yes (Other)
  Sender: FDA-Public Use
  Company Number: DE-PFIZER INC-2011020335

PATIENT
  Age: 40 Year
  Sex: Female

DRUGS (1)
  1. CABASERIL [Suspect]
     Dosage: UNK

REACTIONS (2)
  - ABSCESS [None]
  - PITUITARY TUMOUR BENIGN [None]
